FAERS Safety Report 20796641 (Version 4)
Quarter: 2023Q2

REPORT INFORMATION
  Report Type: Spontaneous
  Country: US (occurrence: US)
  Receive Date: 20220506
  Receipt Date: 20230501
  Transmission Date: 20230722
  Serious: Yes (Other)
  Sender: FDA-Public Use
  Company Number: US-PFIZER INC-202101732672

PATIENT
  Age: 87 Year
  Sex: Female

DRUGS (2)
  1. XELJANZ XR [Suspect]
     Active Substance: TOFACITINIB CITRATE
     Indication: Rheumatoid arthritis
     Dosage: 11 MG, 1X/DAY
     Dates: start: 201905
  2. XELJANZ XR [Suspect]
     Active Substance: TOFACITINIB CITRATE
     Dosage: 11 MG
     Dates: start: 202002

REACTIONS (8)
  - Atrial fibrillation [Unknown]
  - Rheumatoid arthritis [Unknown]
  - Thoracic vertebral fracture [Unknown]
  - Therapeutic product effect incomplete [Unknown]
  - Limb discomfort [Unknown]
  - Spinal osteoarthritis [Unknown]
  - Radiculopathy [Unknown]
  - Body height decreased [Unknown]

NARRATIVE: CASE EVENT DATE: 20220101
